FAERS Safety Report 21957476 (Version 1)
Quarter: 2023Q1

REPORT INFORMATION
  Report Type: Spontaneous
  Country: US (occurrence: US)
  Receive Date: 20230206
  Receipt Date: 20230206
  Transmission Date: 20230417
  Serious: Yes (Other)
  Sender: FDA-Public Use
  Company Number: US-PFIZER INC-2019559210

PATIENT
  Age: 79 Year
  Sex: Female

DRUGS (4)
  1. IBRANCE [Suspect]
     Active Substance: PALBOCICLIB
     Indication: Breast cancer female
     Dosage: 100 MG, DAILY (TAKE 1 TABLET BY MOUTH DAILY)
     Route: 048
  2. IBRANCE [Suspect]
     Active Substance: PALBOCICLIB
     Dosage: 125 MG, CYCLIC (TWO WEEKS)
     Dates: start: 20180402, end: 20180415
  3. IBRANCE [Suspect]
     Active Substance: PALBOCICLIB
     Dosage: 100 MG, CYCLIC (DAY 1-21 Q 28 DAYS WAS DELAYED BY A WEEK)
     Dates: start: 20180619
  4. IBRANCE [Suspect]
     Active Substance: PALBOCICLIB
     Dosage: 100 MG, CYCLIC (3 WEEKS ON, 2 WEEKS OFF)
     Dates: start: 20210101

REACTIONS (5)
  - Leukopenia [Unknown]
  - Bicytopenia [Unknown]
  - Vitamin B12 deficiency [Unknown]
  - Iron deficiency [Unknown]
  - Neutrophil count decreased [Unknown]
